FAERS Safety Report 6068139-5 (Version None)
Quarter: 2009Q1

REPORT INFORMATION
  Report Type: 
  Country: None (occurrence: None)
  Receive Date: 20090206
  Receipt Date: 20090128
  Transmission Date: 20090719
  Serious: Yes (Hospitalization)
  Sender: FDA-Public Use
  Company Number: FR-ASTRAZENECA-2009CG00294

PATIENT
  Age: 21136 Day
  Sex: Female

DRUGS (11)
  1. TENORMIN [Suspect]
     Route: 048
     Dates: start: 20070315, end: 20070420
  2. NEXIUM [Concomitant]
     Route: 048
  3. TARDYFERON [Concomitant]
     Route: 048
     Dates: start: 20061101
  4. DELURSAN [Concomitant]
     Route: 048
     Dates: start: 20061101
  5. PROGRAF [Concomitant]
     Route: 048
     Dates: start: 20061101
  6. ASPEGIC 325 [Concomitant]
     Route: 048
     Dates: start: 20061101
  7. ROVALCYTE [Concomitant]
     Route: 048
     Dates: start: 20061101, end: 20070315
  8. ARANESP [Concomitant]
     Route: 058
     Dates: start: 20061206, end: 20070315
  9. SOLUPRED [Concomitant]
     Route: 048
  10. SOLUPRED [Concomitant]
     Route: 048
  11. GAVISCON [Concomitant]
     Dates: start: 20061106

REACTIONS (2)
  - CYTOLYTIC HEPATITIS [None]
  - PRURITUS [None]
